FAERS Safety Report 14601592 (Version 1)
Quarter: 2018Q1

REPORT INFORMATION
  Report Type: Spontaneous
  Country: IE (occurrence: IE)
  Receive Date: 20180306
  Receipt Date: 20180306
  Transmission Date: 20180509
  Serious: Yes (Death)
  Sender: FDA-Public Use
  Company Number: IE-BAXTER-2018BAX006231

PATIENT
  Age: 23 Year
  Sex: Female
  Weight: 48.5 kg

DRUGS (26)
  1. SMOFLIPID [Suspect]
     Active Substance: FISH OIL\MEDIUM-CHAIN TRIGLYCERIDES\OLIVE OIL\SOYBEAN OIL
     Indication: PARENTERAL NUTRITION
     Route: 041
     Dates: start: 20170627, end: 20170822
  2. CALCIUM CHLORIDE. [Suspect]
     Active Substance: CALCIUM CHLORIDE
     Route: 041
     Dates: start: 20170627, end: 20170822
  3. POTASSIUM CHLORIDE. [Suspect]
     Active Substance: POTASSIUM CHLORIDE
     Route: 041
     Dates: start: 20170627, end: 20170822
  4. SODIUM CHLORIDE 0.9% W/V INTRAVENOUS INFUSION BP [Suspect]
     Active Substance: SODIUM CHLORIDE
     Route: 041
     Dates: start: 20170627, end: 20170822
  5. WATER FOR INJECTION [Suspect]
     Active Substance: WATER
     Route: 041
     Dates: start: 20170627, end: 20170822
  6. AMINOVEN [Suspect]
     Active Substance: AMINO ACIDS
     Indication: PARENTERAL NUTRITION
     Route: 041
     Dates: start: 20170627, end: 20170822
  7. ADDAMEL N [Suspect]
     Active Substance: CHROMIC CHLORIDE\CUPROUS CHLORIDE\FERRIC CHLORIDE\MANGANESE CHLORIDE\POTASSIUM IODIDE\SODIUM FLUORIDE\SODIUM MOLYBDATE DIHYDRATE\SODIUM SELENITE\ZINC CHLORIDE
     Indication: PARENTERAL NUTRITION
     Route: 041
     Dates: start: 20170627, end: 20170822
  8. ADDAMEL N [Suspect]
     Active Substance: CHROMIC CHLORIDE\CUPROUS CHLORIDE\FERRIC CHLORIDE\MANGANESE CHLORIDE\POTASSIUM IODIDE\SODIUM FLUORIDE\SODIUM MOLYBDATE DIHYDRATE\SODIUM SELENITE\ZINC CHLORIDE
     Route: 041
     Dates: start: 20170627, end: 20170822
  9. POTASSIUM CHLORIDE. [Suspect]
     Active Substance: POTASSIUM CHLORIDE
     Indication: PARENTERAL NUTRITION
     Route: 041
     Dates: start: 20170627, end: 20170822
  10. SODIUM CHLORIDE 0.9% W/V INTRAVENOUS INFUSION BP [Suspect]
     Active Substance: SODIUM CHLORIDE
     Indication: PARENTERAL NUTRITION
     Route: 041
     Dates: start: 20170627, end: 20170822
  11. MAGNESIUM SULFATE. [Suspect]
     Active Substance: MAGNESIUM SULFATE
     Route: 041
     Dates: start: 20170627, end: 20170822
  12. SODIUM GLYCEROPHOSPHATE [Suspect]
     Active Substance: SODIUM GLYCEROPHOSPHATE
     Indication: PARENTERAL NUTRITION
     Route: 041
     Dates: start: 20170627, end: 20170822
  13. VITALIPID ADULT [Suspect]
     Active Substance: ERGOCALCIFEROL\PHYTONADIONE\RETINOL\TOCOPHEROL
     Route: 041
     Dates: start: 20170627, end: 20170822
  14. WATER FOR INJECTION [Suspect]
     Active Substance: WATER
     Indication: PARENTERAL NUTRITION
     Route: 041
     Dates: start: 20170627, end: 20170822
  15. MAGNESIUM SULFATE. [Suspect]
     Active Substance: MAGNESIUM SULFATE
     Indication: PARENTERAL NUTRITION
     Route: 041
     Dates: start: 20170627, end: 20170822
  16. SODIUM GLYCEROPHOSPHATE [Suspect]
     Active Substance: SODIUM GLYCEROPHOSPHATE
     Route: 041
     Dates: start: 20170627, end: 20170822
  17. ASCORBIC ACID. [Suspect]
     Active Substance: ASCORBIC ACID
     Indication: PARENTERAL NUTRITION
     Route: 041
     Dates: start: 20170627, end: 20170822
  18. SOLUVIT [Suspect]
     Active Substance: VITAMINS
     Indication: PARENTERAL NUTRITION
     Route: 041
     Dates: start: 20170627, end: 20170822
  19. SOLUVIT [Suspect]
     Active Substance: VITAMINS
     Route: 041
     Dates: start: 20170627, end: 20170822
  20. CALCIUM CHLORIDE. [Suspect]
     Active Substance: CALCIUM CHLORIDE
     Indication: PARENTERAL NUTRITION
     Route: 041
     Dates: start: 20170627, end: 20170822
  21. ASCORBIC ACID. [Suspect]
     Active Substance: ASCORBIC ACID
     Route: 041
     Dates: start: 20170627, end: 20170822
  22. VITALIPID ADULT [Suspect]
     Active Substance: ERGOCALCIFEROL\PHYTONADIONE\RETINOL\TOCOPHEROL
     Indication: PARENTERAL NUTRITION
     Route: 041
     Dates: start: 20170627, end: 20170822
  23. SMOFLIPID [Suspect]
     Active Substance: FISH OIL\MEDIUM-CHAIN TRIGLYCERIDES\OLIVE OIL\SOYBEAN OIL
     Route: 041
     Dates: start: 20170627, end: 20170822
  24. GLUCOSE [Suspect]
     Active Substance: DEXTROSE
     Indication: PARENTERAL NUTRITION
     Route: 041
     Dates: start: 20170627, end: 20170822
  25. AMINOVEN [Suspect]
     Active Substance: AMINO ACIDS
     Route: 041
     Dates: start: 20170627, end: 20170822
  26. GLUCOSE [Suspect]
     Active Substance: DEXTROSE
     Route: 041
     Dates: start: 20170627, end: 20170822

REACTIONS (4)
  - Exposure during pregnancy [Not Recovered/Not Resolved]
  - Condition aggravated [Fatal]
  - Respiratory failure [Fatal]
  - Cystic fibrosis [Fatal]

NARRATIVE: CASE EVENT DATE: 20170101
